FAERS Safety Report 9335393 (Version 1)
Quarter: 2013Q2

REPORT INFORMATION
  Report Type: Spontaneous
  Country: SK (occurrence: SK)
  Receive Date: 20130605
  Receipt Date: 20130605
  Transmission Date: 20140414
  Serious: Yes (Hospitalization)
  Sender: FDA-Public Use
  Company Number: SK-B.I. PHARMACEUTICALS,INC./RIDGEFIELD-2013-AP-00450AP

PATIENT
  Age: 66 Year
  Sex: Male

DRUGS (7)
  1. PRADAXA [Suspect]
     Indication: ATRIAL FIBRILLATION
     Dosage: 300 MG
     Route: 048
     Dates: start: 201301, end: 20130514
  2. ENELBIN [Concomitant]
     Dosage: 200 MG
     Route: 048
  3. CITALOPRAM [Concomitant]
     Dosage: 20 MG
     Route: 048
  4. BETALOC [Concomitant]
     Dosage: 50 MG
     Route: 048
  5. TAMSULOSIN [Concomitant]
     Dosage: 0.4 MG
     Route: 048
  6. LUCETAM [Concomitant]
     Dosage: 2 TBL - 1 TBL - 0
     Route: 048
  7. OMEPRAZOL [Concomitant]

REACTIONS (1)
  - Cerebrovascular accident [Recovered/Resolved]
